FAERS Safety Report 21286181 (Version 2)
Quarter: 2022Q3

REPORT INFORMATION
  Report Type: Spontaneous
  Country: US (occurrence: US)
  Receive Date: 20220902
  Receipt Date: 20220909
  Transmission Date: 20221027
  Serious: Yes (Death)
  Sender: FDA-Public Use
  Company Number: US-AVEO ONCOLOGY-2022-AVEO-US000375

PATIENT

DRUGS (9)
  1. FOTIVDA [Suspect]
     Active Substance: TIVOZANIB HYDROCHLORIDE
     Indication: Renal cell carcinoma
     Dosage: 1.34 MG, DAILY FOR 21 DAYS WITH 7 DAYS OFF (28-DAY CYCLE)
     Route: 048
     Dates: start: 20220708, end: 2022
  2. ADVIL [Concomitant]
     Active Substance: IBUPROFEN
  3. ALBUTEROL [Concomitant]
     Active Substance: ALBUTEROL
  4. AMIODARONE [Concomitant]
     Active Substance: AMIODARONE
  5. AMOXICILLIN [Concomitant]
     Active Substance: AMOXICILLIN
  6. ELIQUIS [Concomitant]
     Active Substance: APIXABAN
  7. LASIX [Concomitant]
     Active Substance: FUROSEMIDE
  8. FLOVENT [Concomitant]
     Active Substance: FLUTICASONE PROPIONATE
  9. MELATONIN [Concomitant]
     Active Substance: MELATONIN

REACTIONS (1)
  - Death [Fatal]
